FAERS Safety Report 20526584 (Version 1)
Quarter: 2022Q1

REPORT INFORMATION
  Report Type: Spontaneous
  Country: US (occurrence: None)
  Receive Date: 20220226
  Receipt Date: 20220226
  Transmission Date: 20220423
  Serious: Yes (Hospitalization)
  Sender: FDA-Public Use
  Company Number: None

PATIENT
  Sex: Female

DRUGS (7)
  1. CAPECITABINE [Suspect]
     Active Substance: CAPECITABINE
  2. INLYTA [Concomitant]
     Active Substance: AXITINIB
  3. LOSARTAN [Concomitant]
     Active Substance: LOSARTAN
  4. METOPROLOL [Concomitant]
     Active Substance: METOPROLOL
  5. VITAMINS [Concomitant]
     Active Substance: VITAMINS
  6. ELIQUIS [Concomitant]
     Active Substance: APIXABAN
  7. OXYCODONE [Concomitant]
     Active Substance: OXYCODONE

REACTIONS (1)
  - Hospitalisation [None]
